FAERS Safety Report 6309637-6 (Version None)
Quarter: 2009Q3

REPORT INFORMATION
  Report Type: 
  Country: None (occurrence: None)
  Receive Date: 20090814
  Receipt Date: 20090806
  Transmission Date: 20100115
  Serious: Yes (Other)
  Sender: FDA-Public Use
  Company Number: US-JNJFOC-20090803127

PATIENT
  Sex: Female
  Weight: 45.36 kg

DRUGS (3)
  1. DURAGESIC-100 [Suspect]
     Indication: NEUROMYOPATHY
     Route: 062
  2. DILAUDID [Concomitant]
     Indication: PAIN
     Dosage: UPTO 6 TIMES A DAY
     Route: 048
  3. SOMA [Concomitant]
     Indication: MUSCLE RELAXANT THERAPY
     Dosage: UPTO 4 TIMES A DAY
     Route: 048

REACTIONS (7)
  - DECREASED ACTIVITY [None]
  - DRUG DOSE OMISSION [None]
  - INAPPROPRIATE SCHEDULE OF DRUG ADMINISTRATION [None]
  - NEUROMYOPATHY [None]
  - ROAD TRAFFIC ACCIDENT [None]
  - SPINAL DISORDER [None]
  - WRONG TECHNIQUE IN DRUG USAGE PROCESS [None]
